FAERS Safety Report 26059175 (Version 3)
Quarter: 2025Q4

REPORT INFORMATION
  Report Type: Report from Study
  Country: ZA (occurrence: ZA)
  Receive Date: 20251118
  Receipt Date: 20251218
  Transmission Date: 20260117
  Serious: Yes (Other)
  Sender: ROCHE
  Company Number: ZA-ROCHE-10000339530

PATIENT
  Age: 76 Year
  Sex: Female

DRUGS (3)
  1. VABYSMO [Suspect]
     Active Substance: FARICIMAB-SVOA
     Indication: Macular degeneration
     Dates: start: 20250429
  2. VABYSMO [Suspect]
     Active Substance: FARICIMAB-SVOA
     Indication: Diabetic retinopathy
  3. VABYSMO [Suspect]
     Active Substance: FARICIMAB-SVOA
     Indication: Diabetic eye disease

REACTIONS (3)
  - Optical coherence tomography abnormal [Unknown]
  - Visual impairment [Unknown]
  - Retinal thickening [Unknown]
